FAERS Safety Report 5988000-1 (Version None)
Quarter: 2008Q4

REPORT INFORMATION
  Report Type: 
  Country: None (occurrence: None)
  Receive Date: 20081210
  Receipt Date: 20080414
  Transmission Date: 20090506
  Serious: No
  Sender: FDA-Public Use
  Company Number: US-AMGEN-KDL274618

PATIENT
  Sex: Female

DRUGS (3)
  1. ENBREL [Suspect]
     Indication: RHEUMATOID ARTHRITIS
     Route: 058
     Dates: start: 20080327
  2. SULFASALAZINE [Concomitant]
     Route: 048
     Dates: start: 19980101
  3. METHOTREXATE [Concomitant]
     Route: 030
     Dates: start: 19990101

REACTIONS (2)
  - HYPERAESTHESIA [None]
  - PAIN IN EXTREMITY [None]
